FAERS Safety Report 8270706-5 (Version None)
Quarter: 2012Q2

REPORT INFORMATION
  Report Type: 
  Country: None (occurrence: None)
  Receive Date: 20120410
  Receipt Date: 20120401
  Transmission Date: 20120825
  Serious: Yes (Other)
  Sender: FDA-Public Use
  Company Number: JP-SANOFI-AVENTIS-2012SA022920

PATIENT
  Age: 72 Year
  Sex: Male

DRUGS (4)
  1. LEUCOVORIN CALCIUM [Suspect]
     Route: 065
  2. OXALIPLATIN [Suspect]
     Route: 065
  3. FLUOROURACIL [Suspect]
     Route: 065
  4. BEVACIZUMAB [Suspect]
     Route: 065

REACTIONS (1)
  - LEUKOENCEPHALOPATHY [None]
